FAERS Safety Report 8666152 (Version 2)
Quarter: 2012Q4

REPORT INFORMATION
  Report Type: 
  Country: US (occurrence: US)
  Receive Date: 20120716
  Receipt Date: 20120919
  Transmission Date: 20130627
  Serious: No
  Sender: FDA-Public Use
  Company Number: US-ASTRAZENECA-2012SE45296

PATIENT
  Age: 57 Year
  Sex: Male
  Weight: 81.6 kg

DRUGS (6)
  1. SYMBICORT [Suspect]
     Indication: CHRONIC OBSTRUCTIVE PULMONARY DISEASE
     Dosage: 160 mcg/4.5 mcg, 2 puffs, TWO TIMES A DAY
     Route: 055
     Dates: start: 201201
  2. SYMBICORT [Suspect]
     Indication: BRONCHITIS
     Dosage: 160 mcg/4.5 mcg, 2 puffs, TWO TIMES A DAY
     Route: 055
     Dates: start: 201201
  3. SYMBICORT [Suspect]
     Indication: EMPHYSEMA
     Dosage: 160 mcg/4.5 mcg, 2 puffs, TWO TIMES A DAY
     Route: 055
     Dates: start: 201201
  4. GENERIC ELAVIL [Concomitant]
     Indication: SLEEP DISORDER
     Route: 048
     Dates: start: 2009
  5. SPIRIVA [Concomitant]
     Indication: CHRONIC OBSTRUCTIVE PULMONARY DISEASE
     Route: 055
     Dates: start: 201201
  6. NAPROXEN [Concomitant]
     Indication: ARTHRITIS
     Dosage: EVERYDAY
     Route: 048
     Dates: start: 2009

REACTIONS (2)
  - Dyspnoea [Not Recovered/Not Resolved]
  - Incorrect dose administered [Not Recovered/Not Resolved]
